FAERS Safety Report 7150143-7 (Version None)
Quarter: 2010Q4

REPORT INFORMATION
  Report Type: 
  Country: None (occurrence: None)
  Receive Date: 20101126
  Receipt Date: 20101115
  Transmission Date: 20110411
  Serious: Yes (Hospitalization)
  Sender: FDA-Public Use
  Company Number: US-JNJFOC-20101105557

PATIENT
  Age: 84 Year
  Sex: Female

DRUGS (3)
  1. DACOGEN (DECITABINE) LYOPHILIZED POWDER [Suspect]
     Indication: MYELODYSPLASTIC SYNDROME
     Dosage: 50 MG, INTRAVENOUS, 50 MG, INTRAVENOUS, 50 MG, INTRAVENOUS
     Route: 042
     Dates: start: 20100913, end: 20100913
  2. DACOGEN (DECITABINE) LYOPHILIZED POWDER [Suspect]
     Indication: MYELODYSPLASTIC SYNDROME
     Dosage: 50 MG, INTRAVENOUS, 50 MG, INTRAVENOUS, 50 MG, INTRAVENOUS
     Route: 042
     Dates: start: 20101011, end: 20101011
  3. DACOGEN (DECITABINE) LYOPHILIZED POWDER [Suspect]
     Indication: MYELODYSPLASTIC SYNDROME
     Dosage: 50 MG, INTRAVENOUS, 50 MG, INTRAVENOUS, 50 MG, INTRAVENOUS
     Route: 042
     Dates: start: 20101111, end: 20101111

REACTIONS (3)
  - ASTHENIA [None]
  - DYSPNOEA [None]
  - OXYGEN SATURATION DECREASED [None]
